FAERS Safety Report 9167135 (Version 3)
Quarter: 2015Q4

REPORT INFORMATION
  Report Type: Report from Study
  Country: US (occurrence: US)
  Receive Date: 20130318
  Receipt Date: 20151013
  Transmission Date: 20160305
  Serious: Yes (Hospitalization, Other)
  Sender: FDA-Public Use
  Company Number: US-BIOGENIDEC-2013BI023291

PATIENT
  Age: 57 Year
  Sex: Female

DRUGS (2)
  1. TYSABRI [Suspect]
     Active Substance: NATALIZUMAB
     Indication: MULTIPLE SCLEROSIS
     Route: 042
  2. TYSABRI [Suspect]
     Active Substance: NATALIZUMAB
     Indication: MULTIPLE SCLEROSIS
     Route: 042
     Dates: start: 20090601

REACTIONS (7)
  - Bacteraemia [Not Recovered/Not Resolved]
  - Seizure [Recovered/Resolved]
  - Myocardial infarction [Recovered/Resolved]
  - Intervertebral disc compression [Not Recovered/Not Resolved]
  - Amniotic band syndrome [Recovered/Resolved]
  - Influenza [Unknown]
  - Asymptomatic bacteriuria [Unknown]

NARRATIVE: CASE EVENT DATE: 20130205
